FAERS Safety Report 4711825-7 (Version None)
Quarter: 2005Q3

REPORT INFORMATION
  Report Type: 
  Country: None (occurrence: None)
  Receive Date: 20050708
  Receipt Date: 20050302
  Transmission Date: 20060218
  Serious: Yes (Other)
  Sender: FDA-Public Use
  Company Number: 2005039187

PATIENT
  Sex: Male
  Weight: 120.2032 kg

DRUGS (5)
  1. NICOTROL [Suspect]
     Indication: SMOKING CESSATION THERAPY
     Dosage: 10 CARTRIDGES DAILY, INHALATION
     Route: 055
  2. ESCITALOPRAM OXALATE [Concomitant]
  3. BUSPIRONE HCL [Concomitant]
  4. ATENOLOL [Concomitant]
  5. ESOMEPRAZOLE (ESOMEPRAZOLE) [Concomitant]

REACTIONS (3)
  - DEPENDENCE [None]
  - MEDICATION ERROR [None]
  - STRESS [None]
